FAERS Safety Report 15995175 (Version 2)
Quarter: 2019Q1

REPORT INFORMATION
  Report Type: Spontaneous
  Country: US (occurrence: US)
  Receive Date: 20190222
  Receipt Date: 20190328
  Transmission Date: 20190418
  Serious: Yes (Hospitalization)
  Sender: FDA-Public Use
  Company Number: US-TEVA-2019-US-1015266

PATIENT
  Age: 64 Year
  Sex: Female

DRUGS (12)
  1. METHYLPHENID [Concomitant]
     Active Substance: METHYLPHENIDATE
  2. GABAPENTIN. [Concomitant]
     Active Substance: GABAPENTIN
  3. LISINOPRIL. [Concomitant]
     Active Substance: LISINOPRIL
  4. VITAMIN B12 [Concomitant]
     Active Substance: CYANOCOBALAMIN
  5. GLUCOS CHOND, [Concomitant]
  6. AMLODIPINE [Concomitant]
     Active Substance: AMLODIPINE BESYLATE
  7. COPAXONE [Suspect]
     Active Substance: GLATIRAMER ACETATE
     Dosage: TIW
     Route: 058
     Dates: start: 20141119
  8. HYDROCO APAP [Concomitant]
  9. FISH OIL [Concomitant]
     Active Substance: FISH OIL
  10. NEURONTIN [Concomitant]
     Active Substance: GABAPENTIN
  11. METHYLIN [Concomitant]
     Active Substance: METHYLPHENIDATE HYDROCHLORIDE
  12. BACLOFEN. [Concomitant]
     Active Substance: BACLOFEN

REACTIONS (5)
  - Concussion [Not Recovered/Not Resolved]
  - Fall [Recovered/Resolved]
  - Spinal fracture [Not Recovered/Not Resolved]
  - Influenza [Not Recovered/Not Resolved]
  - Peripheral swelling [Not Recovered/Not Resolved]

NARRATIVE: CASE EVENT DATE: 20181001
